FAERS Safety Report 19502271 (Version 1)
Quarter: 2021Q3

REPORT INFORMATION
  Report Type: Spontaneous
  Country: US (occurrence: US)
  Receive Date: 20210707
  Receipt Date: 20210707
  Transmission Date: 20211014
  Serious: Yes (Life-Threatening, Hospitalization, Other)
  Sender: FDA-Public Use
  Company Number: US-HIKMA PHARMACEUTICALS USA INC.-US-H14001-21-54816

PATIENT
  Age: 20 Year
  Sex: Female

DRUGS (1)
  1. OXCARBAZEPINE. [Suspect]
     Active Substance: OXCARBAZEPINE
     Indication: SEIZURE
     Dosage: UNKNOWN
     Route: 065

REACTIONS (5)
  - Acute kidney injury [Unknown]
  - Pneumonitis [Recovering/Resolving]
  - Drug reaction with eosinophilia and systemic symptoms [Unknown]
  - Hepatic function abnormal [Recovering/Resolving]
  - Respiratory failure [Recovering/Resolving]
